FAERS Safety Report 24153324 (Version 1)
Quarter: 2024Q3

REPORT INFORMATION
  Report Type: Spontaneous
  Country: US (occurrence: None)
  Receive Date: 20240730
  Receipt Date: 20240730
  Transmission Date: 20241017
  Serious: Yes (Life-Threatening, Disabling)
  Sender: Public
  Company Number: None

PATIENT
  Age: 32 Year
  Sex: Male
  Weight: 83.7 kg

DRUGS (2)
  1. RISPERDAL CONSTA [Suspect]
     Active Substance: RISPERIDONE
     Indication: Psychotic disorder
  2. DEPAKOTE [Concomitant]
     Active Substance: DIVALPROEX SODIUM

REACTIONS (1)
  - Sexual dysfunction [None]

NARRATIVE: CASE EVENT DATE: 20240729
